FAERS Safety Report 7270824-4 (Version None)
Quarter: 2011Q1

REPORT INFORMATION
  Report Type: 
  Country: None (occurrence: None)
  Receive Date: 20110202
  Receipt Date: 20110124
  Transmission Date: 20110831
  Serious: Yes (Other)
  Sender: FDA-Public Use
  Company Number: CA-JNJFOC-20110106691

PATIENT
  Sex: Female
  Weight: 79 kg

DRUGS (4)
  1. REMICADE [Suspect]
     Indication: ANKYLOSING SPONDYLITIS
     Route: 042
  2. AMITRIPTYLINE HCL [Concomitant]
     Route: 048
  3. NAPROXEN [Concomitant]
     Route: 048
  4. ARTHROTEC [Concomitant]
     Route: 048

REACTIONS (4)
  - PARAESTHESIA [None]
  - HEADACHE [None]
  - DRUG EFFECT DECREASED [None]
  - HYPOAESTHESIA [None]
